FAERS Safety Report 7651137-5 (Version None)
Quarter: 2011Q3

REPORT INFORMATION
  Report Type: 
  Country: None (occurrence: None)
  Receive Date: 20110802
  Receipt Date: 20110722
  Transmission Date: 20111222
  Serious: Yes (Death)
  Sender: FDA-Public Use
  Company Number: US-ACTELION-A-NJ2011-47558

PATIENT

DRUGS (3)
  1. TRACLEER [Concomitant]
     Indication: PULMONARY ARTERIAL HYPERTENSION
     Dosage: UNK
     Route: 048
     Dates: start: 20100609, end: 20110101
  2. VENTAVIS [Suspect]
     Indication: PULMONARY ARTERIAL HYPERTENSION
     Dosage: UNK
     Route: 055
     Dates: start: 20110207, end: 20110713
  3. CALCIUM CHANNEL BLOCKERS [Concomitant]

REACTIONS (4)
  - DEATH [None]
  - DIZZINESS [None]
  - DYSPNOEA [None]
  - CHEST DISCOMFORT [None]
